FAERS Safety Report 14048201 (Version 2)
Quarter: 2017Q4

REPORT INFORMATION
  Report Type: Spontaneous
  Country: IT (occurrence: IT)
  Receive Date: 20171005
  Receipt Date: 20171101
  Transmission Date: 20180321
  Serious: Yes (Hospitalization, Other)
  Sender: FDA-Public Use
  Company Number: IT-MYLANLABS-2017M1060989

PATIENT
  Age: 17 Year
  Sex: Female
  Weight: 50 kg

DRUGS (3)
  1. FEVARIN [Suspect]
     Active Substance: FLUVOXAMINE MALEATE
     Indication: DEPRESSION
     Dosage: UNK
     Route: 048
     Dates: start: 20170101
  2. FEVARIN [Suspect]
     Active Substance: FLUVOXAMINE MALEATE
     Dosage: 75 MG, QD
     Route: 048
  3. LITHIUM. [Suspect]
     Active Substance: LITHIUM
     Indication: DEPRESSION
     Dosage: UNK
     Route: 048
     Dates: start: 20170101

REACTIONS (3)
  - Depression [Unknown]
  - Suicidal ideation [Unknown]
  - Psychomotor hyperactivity [Unknown]

NARRATIVE: CASE EVENT DATE: 20170920
